FAERS Safety Report 16104729 (Version 1)
Quarter: 2019Q1

REPORT INFORMATION
  Report Type: Report from Study
  Country: ES (occurrence: ES)
  Receive Date: 20190322
  Receipt Date: 20190322
  Transmission Date: 20190418
  Serious: Yes (Hospitalization)
  Sender: FDA-Public Use
  Company Number: ES-TEVA-2019-ES-1026098

PATIENT
  Age: 60 Year
  Sex: Male

DRUGS (6)
  1. AMLODIPINO (2503A) [Concomitant]
     Active Substance: AMLODIPINE BESYLATE
     Indication: HYPERTENSION
     Dosage: 5 MILLIGRAM DAILY;
     Route: 048
     Dates: start: 20180115
  2. FLECAINIDA ACETATO (2363AC) [Concomitant]
     Active Substance: FLECAINIDE ACETATE
     Indication: ATRIAL FIBRILLATION
     Dosage: 100 MILLIGRAM DAILY;
     Route: 048
     Dates: start: 20180613
  3. RANITIDINA (2A) [Concomitant]
     Active Substance: RANITIDINE
     Indication: PROPHYLAXIS
     Dosage: 300 MILLIGRAM DAILY;
     Route: 048
  4. CICLOSPORINA (406A) [Suspect]
     Active Substance: CYCLOSPORINE
     Indication: BONE MARROW FAILURE
     Dosage: 350 MILLIGRAM DAILY;
     Route: 048
     Dates: start: 20171130
  5. BISOPROLOL (2328A) [Concomitant]
     Active Substance: BISOPROLOL
     Indication: ATRIAL FIBRILLATION
     Dosage: 5 MILLIGRAM DAILY;
     Route: 048
     Dates: start: 20180411
  6. MAGNOGENE 53 MG COMPRIMIDOS RECUBIERTOS, 45 COMPRIMIDOS [Concomitant]
     Indication: NUTRITIONAL SUPPLEMENTATION
     Dosage: 159 MILLIGRAM DAILY;
     Route: 048
     Dates: start: 20180606, end: 20180719

REACTIONS (1)
  - Acute disseminated encephalomyelitis [Recovering/Resolving]

NARRATIVE: CASE EVENT DATE: 20180709
